FAERS Safety Report 7585462-3 (Version None)
Quarter: 2011Q3

REPORT INFORMATION
  Report Type: 
  Country: None (occurrence: None)
  Receive Date: 20110701
  Receipt Date: 20110620
  Transmission Date: 20111222
  Serious: Yes (Hospitalization, Other)
  Sender: FDA-Public Use
  Company Number: US-BAYER-2011-018457

PATIENT
  Age: 33 Year
  Sex: Female
  Weight: 64.399 kg

DRUGS (5)
  1. CEFDINIR [Concomitant]
     Dosage: UNK
     Dates: start: 20090201
  2. YAZ [Suspect]
     Indication: OVARIAN CYST
  3. YAZ [Suspect]
     Indication: CONTRACEPTION
     Dosage: UNK
     Route: 048
     Dates: start: 20080313, end: 20090307
  4. ALBUTEROL SULFATE AUTOHALER [Concomitant]
     Dosage: UNK
     Dates: start: 20090201
  5. AZITHROMYCIN [Concomitant]
     Dosage: UNK
     Dates: start: 20090201

REACTIONS (2)
  - PULMONARY EMBOLISM [None]
  - DEEP VEIN THROMBOSIS [None]
